FAERS Safety Report 11466160 (Version 1)
Quarter: 2015Q3

REPORT INFORMATION
  Report Type: Report from Study
  Country: US (occurrence: US)
  Receive Date: 20150907
  Receipt Date: 20150907
  Transmission Date: 20151125
  Serious: No
  Sender: FDA-Public Use
  Company Number: US-AMGEN-USASP2015091075

PATIENT
  Age: 54 Year

DRUGS (1)
  1. ENBREL [Suspect]
     Active Substance: ETANERCEPT
     Indication: PRODUCT USED FOR UNKNOWN INDICATION
     Dosage: UNK
     Route: 065

REACTIONS (8)
  - Injection site erythema [Unknown]
  - Dehydration [Unknown]
  - Dizziness [Unknown]
  - Injection site swelling [Unknown]
  - Chromaturia [Unknown]
  - Injection site hypersensitivity [Unknown]
  - Dry mouth [Unknown]
  - Injection site bruising [Unknown]
